FAERS Safety Report 6787845-8 (Version None)
Quarter: 2010Q2

REPORT INFORMATION
  Report Type: 
  Country: None (occurrence: None)
  Receive Date: 20100621
  Receipt Date: 20100608
  Transmission Date: 20101027
  Serious: Yes (Hospitalization)
  Sender: FDA-Public Use
  Company Number: 7004608

PATIENT
  Age: 31 Year
  Sex: Female
  Weight: 73 kg

DRUGS (2)
  1. REBIF [Suspect]
     Indication: MULTIPLE SCLEROSIS
     Dosage: 44 MCG, 3 IN 1 WK, SUBCUTANEOUS
     Route: 058
     Dates: start: 20090715
  2. IRON (IRON) [Concomitant]

REACTIONS (2)
  - ANAEMIA [None]
  - MULTIPLE SCLEROSIS RELAPSE [None]
